FAERS Safety Report 6688794-6 (Version None)
Quarter: 2010Q2

REPORT INFORMATION
  Report Type: 
  Country: None (occurrence: None)
  Receive Date: 20100420
  Receipt Date: 20100414
  Transmission Date: 20101027
  Serious: Yes (Other)
  Sender: FDA-Public Use
  Company Number: US-BRISTOL-MYERS SQUIBB COMPANY-15052905

PATIENT

DRUGS (1)
  1. ABILIFY [Suspect]
     Dosage: TAKEN FOR 3MONTHS

REACTIONS (1)
  - RENAL FAILURE [None]
